FAERS Safety Report 12700023 (Version 2)
Quarter: 2016Q4

REPORT INFORMATION
  Report Type: Spontaneous
  Country: US (occurrence: US)
  Receive Date: 20160830
  Receipt Date: 20161004
  Transmission Date: 20170207
  Serious: Yes (Hospitalization, Other)
  Sender: FDA-Public Use
  Company Number: US-TEVA-687915USA

PATIENT
  Age: 66 Year
  Sex: Male

DRUGS (14)
  1. IBUPROFEN. [Suspect]
     Active Substance: IBUPROFEN
     Indication: MUSCLE SPASMS
     Route: 065
  2. CYCLOBENZAPRINE [Concomitant]
     Active Substance: CYCLOBENZAPRINE
     Indication: MUSCLE SPASMS
  3. CALCIUM CARBONATE. [Suspect]
     Active Substance: CALCIUM CARBONATE
     Indication: DYSPEPSIA
     Route: 048
  4. TAMSULOSIN [Concomitant]
     Active Substance: TAMSULOSIN
     Indication: MUSCLE SPASMS
  5. ASPIRIN. [Suspect]
     Active Substance: ASPIRIN
     Indication: DYSPEPSIA
     Route: 065
  6. DISULFIRAM. [Concomitant]
     Active Substance: DISULFIRAM
  7. PARACETAMOL [Concomitant]
     Active Substance: ACETAMINOPHEN
     Indication: MUSCLE SPASMS
  8. AMLODIPINE [Concomitant]
     Active Substance: AMLODIPINE BESYLATE
     Indication: DYSPEPSIA
  9. GLUCOSAMINE [Concomitant]
     Active Substance: GLUCOSAMINE
     Indication: MUSCLE SPASMS
  10. TADALAFIL [Concomitant]
     Active Substance: TADALAFIL
  11. NAPROXEN. [Suspect]
     Active Substance: NAPROXEN
     Indication: MUSCLE SPASMS
     Route: 065
  12. HYDROCHLOROTHIAZIDE. [Suspect]
     Active Substance: HYDROCHLOROTHIAZIDE
     Indication: DYSPEPSIA
     Route: 065
  13. OMEGA 3 FATTY ACID [Concomitant]
     Active Substance: OMEGA-3 FATTY ACIDS
     Indication: MUSCLE SPASMS
  14. MULTIVITAMIN [Concomitant]
     Active Substance: VITAMINS
     Indication: MUSCLE SPASMS

REACTIONS (3)
  - Acute kidney injury [Recovered/Resolved]
  - Milk-alkali syndrome [Recovered/Resolved]
  - Hypercalcaemia [Recovered/Resolved]
